FAERS Safety Report 20835244 (Version 1)
Quarter: 2022Q2

REPORT INFORMATION
  Report Type: Spontaneous
  Country: US (occurrence: US)
  Receive Date: 20220516
  Receipt Date: 20220516
  Transmission Date: 20220721
  Serious: No
  Sender: FDA-Public Use
  Company Number: US-PFIZER INC-202101440586

PATIENT
  Age: 57 Year
  Sex: Male

DRUGS (2)
  1. CORTEF [Suspect]
     Active Substance: HYDROCORTISONE
     Indication: Addison^s disease
     Dosage: 10 MG
  2. CORTEF [Suspect]
     Active Substance: HYDROCORTISONE
     Dosage: 10 MG (TOOK 6 TABLETS)

REACTIONS (9)
  - Influenza like illness [Unknown]
  - Headache [Unknown]
  - Malaise [Unknown]
  - Anger [Unknown]
  - Fatigue [Unknown]
  - Drug ineffective [Unknown]
  - Irritability [Unknown]
  - Product taste abnormal [Unknown]
  - Intentional product use issue [Unknown]
